FAERS Safety Report 9812889 (Version 1)
Quarter: 2014Q1

REPORT INFORMATION
  Report Type: Spontaneous
  Country: US (occurrence: US)
  Receive Date: 20140113
  Receipt Date: 20140113
  Transmission Date: 20141002
  Serious: No
  Sender: FDA-Public Use
  Company Number: US-PFIZER INC-2014009040

PATIENT
  Age: 25 Year
  Sex: Male
  Weight: 77.1 kg

DRUGS (5)
  1. NEURONTIN [Suspect]
     Indication: ANXIETY
     Dosage: 300 MG, 3X/DAY
  2. NEURONTIN [Suspect]
     Dosage: 300 MG, 1X/DAY
  3. PROZAC [Concomitant]
     Dosage: UNK
  4. NEXIUM [Concomitant]
     Dosage: UNK
  5. CLONIDINE [Concomitant]
     Dosage: UNK

REACTIONS (3)
  - Off label use [Unknown]
  - Somnolence [Unknown]
  - Drug ineffective for unapproved indication [Unknown]
